FAERS Safety Report 4703844-1 (Version None)
Quarter: 2005Q2

REPORT INFORMATION
  Report Type: 
  Country: None (occurrence: None)
  Receive Date: 20050630
  Receipt Date: 20050516
  Transmission Date: 20051028
  Serious: Yes (Other)
  Sender: FDA-Public Use
  Company Number: US-GLAXOSMITHKLINE-A0558788A

PATIENT
  Age: 4 Year
  Sex: Female

DRUGS (2)
  1. FLOVENT [Suspect]
     Indication: ASTHMA
     Route: 055
     Dates: start: 20050302
  2. ALBUTEROL [Concomitant]

REACTIONS (1)
  - ASTHMA [None]
